FAERS Safety Report 6075648-1 (Version None)
Quarter: 2009Q1

REPORT INFORMATION
  Report Type: 
  Country: None (occurrence: None)
  Receive Date: 20090210
  Receipt Date: 20090210
  Transmission Date: 20090719
  Serious: Yes (Death)
  Sender: FDA-Public Use
  Company Number: None

PATIENT
  Age: 75 Year
  Sex: Male
  Weight: 81.2 kg

DRUGS (1)
  1. ALVIMOPAN 12MG GLAXO [Suspect]
     Indication: POSTOPERATIVE CARE
     Dosage: 12MG TWICE DAILY PO
     Route: 048
     Dates: start: 20081208, end: 20081210

REACTIONS (2)
  - NO THERAPEUTIC RESPONSE [None]
  - VENTRICULAR FIBRILLATION [None]
